FAERS Safety Report 17873006 (Version 1)
Quarter: 2020Q2

REPORT INFORMATION
  Report Type: Spontaneous
  Country: US (occurrence: US)
  Receive Date: 20200608
  Receipt Date: 20200608
  Transmission Date: 20200714
  Serious: No
  Sender: FDA-Public Use
  Company Number: US-ALKERMES INC.-ALK-2020-002276

PATIENT
  Age: 28 Year
  Sex: Male

DRUGS (1)
  1. VIVITROL [Suspect]
     Active Substance: NALTREXONE
     Indication: DRUG DEPENDENCE
     Dosage: 380 MILLIGRAM, QMO
     Route: 030
     Dates: start: 20200601

REACTIONS (6)
  - Dyspnoea [Unknown]
  - Dizziness [Unknown]
  - Weight increased [Unknown]
  - Nausea [Unknown]
  - Swelling face [Unknown]
  - Vomiting [Unknown]

NARRATIVE: CASE EVENT DATE: 202006
